FAERS Safety Report 4633914-8 (Version None)
Quarter: 2005Q2

REPORT INFORMATION
  Report Type: 
  Country: None (occurrence: None)
  Receive Date: 20050412
  Receipt Date: 20050329
  Transmission Date: 20051028
  Serious: Yes (Death)
  Sender: FDA-Public Use
  Company Number: 2005S1001715

PATIENT
  Age: 62 Year
  Sex: Female

DRUGS (8)
  1. CLOZAPINE [Suspect]
     Indication: SCHIZOPHRENIA
     Dosage: 25 MG; BID; PO
     Route: 048
     Dates: start: 20041001, end: 20050301
  2. CLOZAPINE [Suspect]
     Indication: SCHIZOPHRENIA
     Dosage: 100 MG;BID;PO; SEE IMAGE
     Route: 048
     Dates: start: 20041001, end: 20050301
  3. CLOZAPINE [Suspect]
     Indication: SCHIZOPHRENIA
     Dosage: 100 MG;BID;PO; SEE IMAGE
     Route: 048
     Dates: start: 20041001, end: 20050301
  4. RISPERIDONE [Concomitant]
  5. FAMOTIDINE [Concomitant]
  6. CAPTOPRIL [Concomitant]
  7. VALPROATE SODIUM [Concomitant]
  8. INSULIN [Concomitant]

REACTIONS (1)
  - DEATH [None]
